FAERS Safety Report 16799666 (Version 1)
Quarter: 2019Q3

REPORT INFORMATION
  Report Type: Spontaneous
  Country: US (occurrence: US)
  Receive Date: 20190723
  Receipt Date: 20190723
  Transmission Date: 20191005
  Serious: Yes (Hospitalization)
  Sender: FDA-Public Use
  Company Number: None

PATIENT
  Age: 39 Year
  Sex: Female

DRUGS (4)
  1. HYDROXYPROG CAPRO 250 MG/ML MDV [Suspect]
     Active Substance: HYDROXYPROGESTERONE CAPROATE
     Indication: PROPHYLAXIS
     Route: 030
  2. AMOXICILLIN. [Concomitant]
     Active Substance: AMOXICILLIN
  3. HYDROXYPROG CAPRO 250 MG/ML MDV [Suspect]
     Active Substance: HYDROXYPROGESTERONE CAPROATE
     Indication: PREMATURE LABOUR
     Route: 030
  4. METRONIDAZOL [Concomitant]
     Active Substance: METRONIDAZOLE

REACTIONS (2)
  - Maternal drugs affecting foetus [None]
  - Abortion spontaneous [None]

NARRATIVE: CASE EVENT DATE: 20190626
